FAERS Safety Report 9609371 (Version 8)
Quarter: 2013Q4

REPORT INFORMATION
  Report Type: Report from Study
  Country: US (occurrence: US)
  Receive Date: 20131009
  Receipt Date: 20131220
  Transmission Date: 20140711
  Serious: Yes (Hospitalization)
  Sender: FDA-Public Use
  Company Number: US-ACTELION-A-US2013-88976

PATIENT
  Age: 44 Year
  Sex: Female

DRUGS (4)
  1. VENTAVIS [Suspect]
     Indication: PULMONARY ARTERIAL HYPERTENSION
     Dosage: 6-7/DAY
     Route: 055
  2. LETAIRIS [Suspect]
     Dosage: 10 MG, UNK
     Dates: start: 20101111
  3. REVATIO [Suspect]
  4. COUMADIN [Concomitant]

REACTIONS (27)
  - Dehydration [Unknown]
  - Feeling abnormal [Unknown]
  - Oedema [Unknown]
  - Headache [Not Recovered/Not Resolved]
  - Bronchitis [Not Recovered/Not Resolved]
  - Visual impairment [Not Recovered/Not Resolved]
  - Fall [Unknown]
  - Head injury [Unknown]
  - Joint injury [Unknown]
  - Pharyngitis [Unknown]
  - Tonsillitis [Unknown]
  - Malaise [Unknown]
  - Oropharyngeal pain [Unknown]
  - Body temperature increased [Unknown]
  - Throat irritation [Unknown]
  - Throat tightness [Unknown]
  - Dizziness [Unknown]
  - Chest discomfort [Unknown]
  - Flushing [Unknown]
  - Migraine [Unknown]
  - Hypotension [Unknown]
  - Fatigue [Unknown]
  - Overdose [Unknown]
  - Drug dose omission [Unknown]
  - Syncope [Unknown]
  - Gait disturbance [Unknown]
  - Herpes zoster [Unknown]
